FAERS Safety Report 17500248 (Version 1)
Quarter: 2020Q1

REPORT INFORMATION
  Report Type: Spontaneous
  Country: IE (occurrence: IE)
  Receive Date: 20200305
  Receipt Date: 20200305
  Transmission Date: 20200409
  Serious: Yes (Death, Other)
  Sender: FDA-Public Use
  Company Number: IE-ASTELLAS-2020US008448

PATIENT
  Age: 78 Year
  Sex: Male

DRUGS (3)
  1. PROGRAF [Suspect]
     Active Substance: TACROLIMUS
     Dosage: 0.5MG IN MORNING AND 1MG AT NIGHT
     Route: 048
     Dates: start: 2017
  2. PROGRAF [Suspect]
     Active Substance: TACROLIMUS
     Indication: RENAL DISORDER
     Dosage: 0.5MG IN MORNING AND 1MG AT NIGHT
     Route: 048
     Dates: start: 2016
  3. PROGRAF [Suspect]
     Active Substance: TACROLIMUS
     Dosage: 0.5MG IN MORNING AND 1MG AT NIGHT
     Route: 048
     Dates: start: 2018, end: 202002

REACTIONS (2)
  - Myocardial infarction [Fatal]
  - Product use in unapproved indication [Unknown]

NARRATIVE: CASE EVENT DATE: 202002
